FAERS Safety Report 13952940 (Version 1)
Quarter: 2017Q3

REPORT INFORMATION
  Report Type: Spontaneous
  Country: US (occurrence: US)
  Receive Date: 20170911
  Receipt Date: 20170911
  Transmission Date: 20171128
  Serious: No
  Sender: FDA-Public Use
  Company Number: US-TEVA-770007USA

PATIENT
  Sex: Male

DRUGS (3)
  1. FENTANYL. [Suspect]
     Active Substance: FENTANYL
     Dosage: 50 MCG/H PATCHES EVERY 48 HOURS
     Route: 062
     Dates: end: 201611
  2. FENTANYL. [Suspect]
     Active Substance: FENTANYL
     Dosage: 75 MCG/H PATCH EVERY 72 HOURS
     Route: 062
     Dates: start: 201611
  3. FENTANYL. [Suspect]
     Active Substance: FENTANYL
     Dosage: 25 MCG/H PATCH EVERY 60 HOURS
     Route: 062

REACTIONS (9)
  - Drug effect decreased [Unknown]
  - Drug withdrawal syndrome [Unknown]
  - Blood pressure increased [Unknown]
  - Muscle spasms [Unknown]
  - Diarrhoea [Unknown]
  - Malaise [Unknown]
  - Tremor [Unknown]
  - Product physical issue [Unknown]
  - Heart rate increased [Unknown]
